FAERS Safety Report 8087153-1 (Version None)
Quarter: 2012Q1

REPORT INFORMATION
  Report Type: 
  Country: None (occurrence: None)
  Receive Date: 20120128
  Receipt Date: 20110415
  Transmission Date: 20120608
  Serious: No
  Sender: FDA-Public Use
  Company Number: US-ABBOTT-11P-163-0719358-00

PATIENT
  Age: 61 Year
  Sex: Male

DRUGS (5)
  1. GENERIC CLOBETASOL [Concomitant]
     Indication: PRODUCT USED FOR UNKNOWN INDICATION
     Route: 061
  2. LOVASTATIN [Concomitant]
     Indication: BLOOD CHOLESTEROL
  3. UNKNOWN MEDICATION [Concomitant]
     Indication: BLOOD PRESSURE
  4. HUMIRA [Suspect]
     Indication: PSORIASIS
     Dates: start: 20110301
  5. UNKNOWN MEDICATION [Concomitant]
     Indication: PROSTATOMEGALY

REACTIONS (2)
  - PSYCHOMOTOR HYPERACTIVITY [None]
  - ANXIETY [None]
